FAERS Safety Report 6742503-0 (Version None)
Quarter: 2010Q2

REPORT INFORMATION
  Report Type: 
  Country: None (occurrence: None)
  Receive Date: 20100526
  Receipt Date: 20100520
  Transmission Date: 20101027
  Serious: Yes (Other)
  Sender: FDA-Public Use
  Company Number: ES-B.I. PHARMACEUTICALS,INC./RIDGEFIELD-2010-DE-02815GD

PATIENT
  Age: 70 Year
  Sex: Female

DRUGS (3)
  1. PRAMIPEXOLE DIHYDROCHLORIDE [Suspect]
     Indication: PARKINSON'S DISEASE
     Dosage: 2.1 MG
  2. LEVODOPA [Suspect]
     Indication: PARKINSON'S DISEASE
     Dosage: 150 MG
  3. RASAGILINE [Suspect]
     Indication: PARKINSON'S DISEASE
     Dosage: 1 MG

REACTIONS (4)
  - AMIMIA [None]
  - ATAXIA [None]
  - DRUG INEFFECTIVE [None]
  - TREMOR [None]
